FAERS Safety Report 15607987 (Version 1)
Quarter: 2018Q4

REPORT INFORMATION
  Report Type: Spontaneous
  Country: ES (occurrence: ES)
  Receive Date: 20181112
  Receipt Date: 20181112
  Transmission Date: 20190205
  Serious: Yes (Other)
  Sender: FDA-Public Use
  Company Number: ES-JNJFOC-20181111020

PATIENT
  Age: 75 Year
  Sex: Female

DRUGS (8)
  1. CARDYL [Concomitant]
     Active Substance: ATORVASTATIN CALCIUM
     Route: 065
  2. OPTOVITE B12 [Concomitant]
     Active Substance: CYANOCOBALAMIN
     Route: 065
  3. XARELTO [Suspect]
     Active Substance: RIVAROXABAN
     Indication: PRODUCT USED FOR UNKNOWN INDICATION
     Route: 048
     Dates: start: 2018
  4. ORFIDAL [Concomitant]
     Active Substance: LORAZEPAM
     Indication: ANXIETY
     Route: 065
  5. PANTECTA [Concomitant]
     Active Substance: PANTOPRAZOLE SODIUM
     Route: 065
  6. APOCARD [Concomitant]
     Active Substance: FLECAINIDE ACETATE
     Route: 065
  7. PAROXETINE HYDROCHLORIDE. [Concomitant]
     Active Substance: PAROXETINE HYDROCHLORIDE
     Route: 065
  8. HIDROFEROL [Concomitant]
     Active Substance: CALCIFEDIOL
     Route: 065

REACTIONS (2)
  - Urinary tract infection [Unknown]
  - Fatigue [Unknown]
